FAERS Safety Report 6412905-0 (Version None)
Quarter: 2009Q4

REPORT INFORMATION
  Report Type: 
  Country: None (occurrence: None)
  Receive Date: 20091023
  Receipt Date: 20091014
  Transmission Date: 20100525
  Serious: Yes (Hospitalization)
  Sender: FDA-Public Use
  Company Number: BR-ABBOTT-09P-020-0600068-00

PATIENT
  Sex: Female
  Weight: 60 kg

DRUGS (11)
  1. HUMIRA [Suspect]
     Indication: RHEUMATOID ARTHRITIS
     Route: 058
     Dates: start: 20080101
  2. HUMIRA [Suspect]
     Dates: start: 20080101
  3. CORUS H [Concomitant]
     Indication: HYPERTENSION
     Route: 048
     Dates: start: 20090601
  4. METHOTREXATE [Concomitant]
     Indication: RHEUMATOID ARTHRITIS
     Route: 048
  5. FLUOXETINE [Concomitant]
     Indication: DEPRESSION
     Route: 048
     Dates: start: 20090601
  6. ACETYLSALICYLIC ACID [Concomitant]
     Indication: DRUG USE FOR UNKNOWN INDICATION
     Route: 048
  7. PANTOPRAZOLE SODIUM [Concomitant]
     Indication: GASTRIC DISORDER
     Route: 048
  8. CALCIUM CARBONATE W/COLECALCIFEROL [Concomitant]
     Indication: BONE DISORDER
     Route: 048
  9. MELOXICAM, PARACETAMOL, TRIAMCINOLONE, FAMOTIDINE (MAGISTRAL FORMULA) [Concomitant]
     Indication: RHEUMATOID ARTHRITIS
     Dosage: MELOXICAM 5 MG, PARACETAMOL 600 MG, TRAIMCINOLONE 1MG, FAMOTIDINE 20MG
     Route: 048
  10. METHOTREXATE 10 MG, FOLIC ACID (MAGISTRAL FORMULA) [Concomitant]
     Indication: DRUG USE FOR UNKNOWN INDICATION
     Route: 048
  11. FLUOXETINE [Concomitant]
     Route: 048

REACTIONS (6)
  - BONE EROSION [None]
  - CARDIAC DISORDER [None]
  - COUGH [None]
  - DYSPNOEA [None]
  - HYPERTENSION [None]
  - URINARY TRACT INFECTION [None]
